FAERS Safety Report 9013715 (Version 1)
Quarter: 2013Q1

REPORT INFORMATION
  Report Type: Spontaneous
  Country: US (occurrence: None)
  Receive Date: 20130108
  Receipt Date: 20130108
  Transmission Date: 20140127
  Serious: Yes (Hospitalization)
  Sender: FDA-Public Use
  Company Number: None

PATIENT
  Sex: Female
  Weight: 63.7 kg

DRUGS (4)
  1. RIVAROXABAN [Suspect]
     Indication: THROMBOSIS PROPHYLAXIS
     Dosage: 10 MG DAILY ORAL
     Route: 048
     Dates: start: 20121003, end: 20121120
  2. ASPIRIN [Suspect]
     Indication: THROMBOSIS PROPHYLAXIS
     Dosage: 81 MG DAILY ORAL
     Route: 048
     Dates: start: 20121003, end: 20121120
  3. ENOXAPARIN [Suspect]
     Indication: PULMONARY EMBOLISM
     Dosage: 60 MG EVERY 12 HOURS SUBCUTANEOUS
     Route: 058
     Dates: start: 20121120, end: 20121120
  4. WARFARIN [Concomitant]

REACTIONS (3)
  - Haemoglobin decreased [None]
  - Gastrointestinal haemorrhage [None]
  - Duodenal ulcer [None]
